FAERS Safety Report 9324850 (Version 1)
Quarter: 2013Q2

REPORT INFORMATION
  Report Type: Report from Study
  Country: AU (occurrence: AU)
  Receive Date: 20130603
  Receipt Date: 20130603
  Transmission Date: 20140414
  Serious: Yes (Other)
  Sender: FDA-Public Use
  Company Number: PHHY2013AU055839

PATIENT
  Sex: Male

DRUGS (3)
  1. ACLASTA [Suspect]
     Dosage: UNK
     Route: 042
     Dates: start: 20100525
  2. ACLASTA [Suspect]
     Dosage: UNK
     Route: 042
     Dates: start: 20110518
  3. ACLASTA [Suspect]
     Dosage: UNK
     Route: 042
     Dates: start: 20120509

REACTIONS (1)
  - Cerebrovascular accident [Unknown]
